FAERS Safety Report 5053381-2 (Version None)
Quarter: 2006Q3

REPORT INFORMATION
  Report Type: 
  Country: None (occurrence: None)
  Receive Date: 20060712
  Receipt Date: 20060704
  Transmission Date: 20061208
  Serious: Yes (Death)
  Sender: FDA-Public Use
  Company Number: A-CH2006-12544

PATIENT
  Age: 68 Year
  Sex: Female
  Weight: 77.2 kg

DRUGS (9)
  1. TRACLEER [Suspect]
     Indication: PULMONARY HYPERTENSION
     Dosage: 125 MG, BID, ORAL; SEE IMAGE
     Route: 048
     Dates: start: 20040123
  2. AMLODIPINE [Concomitant]
  3. OMEPRAZOLE [Concomitant]
  4. LANOXIN [Concomitant]
  5. EMCONCOR (BISOPROLOL) [Concomitant]
  6. MARCUMAR [Concomitant]
  7. ALPRAZOLAM [Concomitant]
  8. GLUCOPHAGE [Concomitant]
  9. EFFEXOR [Concomitant]

REACTIONS (4)
  - ACUTE ABDOMEN [None]
  - ACUTE RESPIRATORY DISTRESS SYNDROME [None]
  - ASPARTATE AMINOTRANSFERASE INCREASED [None]
  - RETROPERITONEAL HAEMORRHAGE [None]
